FAERS Safety Report 15999519 (Version 1)
Quarter: 2019Q1

REPORT INFORMATION
  Report Type: Spontaneous
  Country: US (occurrence: US)
  Receive Date: 20190225
  Receipt Date: 20190225
  Transmission Date: 20190418
  Serious: Yes (Hospitalization, Disabling)
  Sender: FDA-Public Use
  Company Number: US-JNJFOC-20190231538

PATIENT
  Age: 64 Year
  Sex: Male

DRUGS (1)
  1. INVOKANA [Suspect]
     Active Substance: CANAGLIFLOZIN
     Indication: TYPE 2 DIABETES MELLITUS
     Route: 048
     Dates: start: 20140326

REACTIONS (6)
  - Osteomyelitis acute [Unknown]
  - Abscess limb [Unknown]
  - Leg amputation [Unknown]
  - Gangrene [Unknown]
  - Neuropathic arthropathy [Unknown]
  - Sepsis [Unknown]

NARRATIVE: CASE EVENT DATE: 20160308
